FAERS Safety Report 10865684 (Version 2)
Quarter: 2015Q2

REPORT INFORMATION
  Report Type: Report from Study
  Country: US (occurrence: US)
  Receive Date: 20150224
  Receipt Date: 20150512
  Transmission Date: 20150821
  Serious: Yes (Hospitalization)
  Sender: FDA-Public Use
  Company Number: US-GLAXOSMITHKLINE-US2015023332

PATIENT
  Age: 70 Year
  Sex: Male
  Weight: 109.5 kg

DRUGS (36)
  1. BLINDED FLUTICASONE FUROATE + VILANTEROL TRIFENATATE [Suspect]
     Active Substance: FLUTICASONE FUROATE\VILANTEROL TRIFENATATE
     Indication: CHRONIC OBSTRUCTIVE PULMONARY DISEASE
     Dosage: UNK
     Dates: start: 20131228
  2. BLINDED VILANTEROL TRIFENATATE [Suspect]
     Active Substance: VILANTEROL TRIFENATATE
     Indication: CHRONIC OBSTRUCTIVE PULMONARY DISEASE
     Dosage: UNK
     Dates: start: 20131228
  3. ARIXTRA [Concomitant]
     Active Substance: FONDAPARINUX SODIUM
     Indication: ANTICOAGULANT THERAPY
     Dosage: 10 MG, OD
     Route: 058
     Dates: start: 20131225, end: 20131227
  4. HEPARIN [Concomitant]
     Active Substance: HEPARIN SODIUM
     Indication: ANTICOAGULANT THERAPY
     Dosage: 0.6 ML, PRN
     Route: 058
     Dates: start: 20131224, end: 20131225
  5. MORPHINE [Concomitant]
     Active Substance: MORPHINE
     Indication: PAIN
     Dosage: 2 MG, PRN
     Route: 042
     Dates: start: 20131225, end: 20131226
  6. XARELTO [Concomitant]
     Active Substance: RIVAROXABAN
     Indication: ANTICOAGULANT THERAPY
     Dosage: 15 MG, BID
     Route: 048
     Dates: start: 20131227, end: 20140116
  7. PROCHLORPERAZINE MALEATE. [Concomitant]
     Active Substance: PROCHLORPERAZINE MALEATE
     Indication: DIZZINESS
     Dosage: 1 TAB, Q6H
     Route: 048
     Dates: start: 20131126
  8. CELEBREX [Concomitant]
     Active Substance: CELECOXIB
     Indication: ARTHRITIS
     Dosage: 200 MG, OD
     Route: 048
     Dates: start: 2002
  9. MAGNESIUM [Concomitant]
     Active Substance: MAGNESIUM
     Indication: BLOOD MAGNESIUM DECREASED
     Dosage: 2 G, ONE
     Route: 042
     Dates: start: 20140114, end: 20140114
  10. ETOPOSIDE. [Concomitant]
     Active Substance: ETOPOSIDE
     Indication: LUNG NEOPLASM MALIGNANT
     Dosage: 80 MG/M2, CINF
     Route: 042
     Dates: start: 20131231, end: 20140414
  11. ATIVAN [Concomitant]
     Active Substance: LORAZEPAM
     Indication: PROPHYLAXIS
     Dosage: 1 MG, ONE
     Route: 042
     Dates: start: 20140123, end: 20140123
  12. SALBUTAMOL [Concomitant]
     Active Substance: ALBUTEROL
     Indication: CHRONIC OBSTRUCTIVE PULMONARY DISEASE
     Dosage: 90 MCG, BID
     Route: 055
     Dates: start: 20131213
  13. COMBIVENT [Concomitant]
     Active Substance: ALBUTEROL SULFATE\IPRATROPIUM BROMIDE
     Indication: CHRONIC OBSTRUCTIVE PULMONARY DISEASE
     Dosage: 1 PUFF, QID
     Route: 055
     Dates: start: 20121008
  14. ACETAMINOPHEN. [Concomitant]
     Active Substance: ACETAMINOPHEN
     Indication: HEADACHE
     Dosage: 650 MG, ONE
     Route: 048
     Dates: start: 20131224, end: 20131227
  15. XARELTO [Concomitant]
     Active Substance: RIVAROXABAN
     Dosage: 20 MG, OD
     Route: 048
     Dates: start: 20140117
  16. PLACEBO [Suspect]
     Active Substance: UNSPECIFIED INGREDIENT
     Indication: CHRONIC OBSTRUCTIVE PULMONARY DISEASE
     Dosage: UNK
     Dates: start: 20131228
  17. COMBIVENT [Concomitant]
     Active Substance: ALBUTEROL SULFATE\IPRATROPIUM BROMIDE
     Dosage: 1 PUFF, Q4H
     Route: 055
     Dates: start: 20131223, end: 20131225
  18. MAGNESIUM OXIDE. [Concomitant]
     Active Substance: MAGNESIUM OXIDE
     Indication: PROPHYLAXIS
     Dosage: 1 TAB, PRN
     Route: 048
     Dates: start: 20131223, end: 20131225
  19. PLATELETS [Concomitant]
     Active Substance: HUMAN PLATELET, ALLOGENIC
     Indication: THROMBOCYTOPENIA
     Dosage: 2 U, ONE
     Route: 042
     Dates: start: 20131224, end: 20131225
  20. VERAMYST [Concomitant]
     Active Substance: FLUTICASONE FUROATE
     Indication: MULTIPLE ALLERGIES
     Dosage: 27.5 MCG, BID
     Route: 055
     Dates: start: 2002, end: 2014
  21. LISINOPRIL. [Concomitant]
     Active Substance: LISINOPRIL
     Indication: HYPERTENSION
     Dosage: 20 MG, OD
     Route: 048
     Dates: start: 2005
  22. BLINDED FLUTICASONE FUROATE [Suspect]
     Active Substance: FLUTICASONE FUROATE
     Indication: CHRONIC OBSTRUCTIVE PULMONARY DISEASE
     Dosage: UNK
     Dates: start: 20131228
  23. BLINDED FLUTICASONE FUROATE + VILANTEROL TRIFENATATE [Suspect]
     Active Substance: FLUTICASONE FUROATE\VILANTEROL TRIFENATATE
     Indication: CHRONIC OBSTRUCTIVE PULMONARY DISEASE
     Dosage: UNK
     Dates: start: 20131228
  24. HYDROCODONE [Concomitant]
     Active Substance: HYDROCODONE
     Indication: PAIN
     Dosage: 7.5 MG, PRN
     Route: 048
     Dates: start: 20131224, end: 20131226
  25. METFORMIN [Concomitant]
     Active Substance: METFORMIN HYDROCHLORIDE
     Indication: DIABETES MELLITUS
     Dosage: 500 MG, TID
     Route: 048
     Dates: start: 20130618
  26. PRAVASTATIN [Concomitant]
     Active Substance: PRAVASTATIN\PRAVASTATIN SODIUM
     Indication: HYPERLIPIDAEMIA
     Dosage: 20 MCL, OD
     Route: 048
     Dates: start: 20130927
  27. ZOFRAN [Concomitant]
     Active Substance: ONDANSETRON HYDROCHLORIDE
     Indication: NAUSEA
     Dosage: 8 MG, PRN
     Route: 048
     Dates: start: 20131227
  28. ROBITUSSIN WITH CODEINE [Concomitant]
     Active Substance: CODEINE PHOSPHATE\GUAIFENESIN\PHENIRAMINE MALEATE
     Indication: ACUTE SINUSITIS
     Dosage: 15 ML, PRN
     Route: 048
     Dates: start: 20140122
  29. ZYRTEC [Concomitant]
     Active Substance: CETIRIZINE HYDROCHLORIDE
     Indication: MULTIPLE ALLERGIES
     Dosage: 10 MG, PRN
     Route: 048
     Dates: start: 20131226, end: 20131227
  30. MUCINEX [Concomitant]
     Active Substance: GUAIFENESIN
     Indication: OROPHARYNGEAL PAIN
     Dosage: 600 MG, BID
     Route: 048
     Dates: start: 20130927
  31. CULTURELLE [Concomitant]
     Active Substance: LACTOBACILLUS RHAMNOSUS
     Indication: PRODUCT USED FOR UNKNOWN INDICATION
     Dosage: 200 MG, ONE
     Route: 048
     Dates: start: 201208
  32. CARBOPLATIN. [Concomitant]
     Active Substance: CARBOPLATIN
     Indication: LUNG NEOPLASM MALIGNANT
     Dosage: 5 UNK, CINF
     Route: 042
     Dates: start: 20131231, end: 20140414
  33. BLINDED FLUTICASONE FUROATE [Suspect]
     Active Substance: FLUTICASONE FUROATE
     Indication: CHRONIC OBSTRUCTIVE PULMONARY DISEASE
     Dosage: UNK
     Dates: start: 20131228
  34. BLINDED VILANTEROL TRIFENATATE [Suspect]
     Active Substance: VILANTEROL TRIFENATATE
     Indication: CHRONIC OBSTRUCTIVE PULMONARY DISEASE
     Dosage: UNK
     Dates: start: 20131228
  35. LEVOFLOXACIN. [Concomitant]
     Active Substance: LEVOFLOXACIN
     Indication: ACUTE SINUSITIS
     Dosage: 750 MG, OD
     Route: 048
     Dates: start: 20131223, end: 20140101
  36. HYDROCHLOROTHIAZIDE. [Concomitant]
     Active Substance: HYDROCHLOROTHIAZIDE
     Indication: HYPERTENSION
     Dosage: 37.5 MG, OD
     Route: 048
     Dates: start: 2002

REACTIONS (1)
  - Headache [Recovered/Resolved]

NARRATIVE: CASE EVENT DATE: 20140123
